FAERS Safety Report 7554693-0 (Version None)
Quarter: 2011Q2

REPORT INFORMATION
  Report Type: 
  Country: None (occurrence: None)
  Receive Date: 20110617
  Receipt Date: 20110615
  Transmission Date: 20111010
  Serious: Yes (Hospitalization, Other)
  Sender: FDA-Public Use
  Company Number: US-PFIZER INC-2011131587

PATIENT
  Sex: Male
  Weight: 81.633 kg

DRUGS (8)
  1. ZITHROMAX [Concomitant]
     Indication: INFLUENZA
     Dosage: 500 MG, UNK
  2. PRISTIQ [Concomitant]
     Indication: DEPRESSION
     Dosage: UNK
  3. SYMBICORT [Concomitant]
     Indication: CHRONIC OBSTRUCTIVE PULMONARY DISEASE
     Dosage: UNK
  4. CHANTIX [Suspect]
     Indication: SMOKING CESSATION THERAPY
     Dosage: 0.5 MG, 1X/DAY
     Route: 048
     Dates: start: 20100901, end: 20100101
  5. PREDNISONE [Concomitant]
     Indication: MOOD ALTERED
     Dosage: 20 MG, UNK
  6. NICORETTE [Concomitant]
     Indication: SMOKING CESSATION THERAPY
     Dosage: UNK
  7. CHANTIX [Interacting]
     Dosage: UNK
     Route: 048
     Dates: start: 20100101, end: 20101015
  8. VENTOLIN HFA [Concomitant]
     Indication: CHRONIC OBSTRUCTIVE PULMONARY DISEASE
     Dosage: UNK
     Route: 055

REACTIONS (9)
  - EATING DISORDER [None]
  - IRRITABILITY [None]
  - NAUSEA [None]
  - MENTAL DISORDER [None]
  - HYPERHIDROSIS [None]
  - MENTAL IMPAIRMENT [None]
  - DRUG INTERACTION [None]
  - INSOMNIA [None]
  - DISORIENTATION [None]
